FAERS Safety Report 19630550 (Version 4)
Quarter: 2023Q1

REPORT INFORMATION
  Report Type: Spontaneous
  Country: US (occurrence: US)
  Receive Date: 20210728
  Receipt Date: 20230213
  Transmission Date: 20230417
  Serious: No
  Sender: FDA-Public Use
  Company Number: US-SA-SAC20210723000646

PATIENT
  Age: 73 Year
  Sex: Male

DRUGS (2)
  1. DUPIXENT [Suspect]
     Active Substance: DUPILUMAB
     Indication: Dermatitis atopic
     Dosage: 300 MG, QOW
     Route: 058
     Dates: start: 202105, end: 202106
  2. DUPIXENT [Suspect]
     Active Substance: DUPILUMAB
     Dosage: 300 MG, QOW
     Route: 058
     Dates: start: 202107, end: 202203

REACTIONS (6)
  - Eczema [Unknown]
  - Musculoskeletal stiffness [Unknown]
  - Visual impairment [Unknown]
  - Myalgia [Unknown]
  - Pruritus [Unknown]
  - Dry eye [Unknown]

NARRATIVE: CASE EVENT DATE: 20210616
